FAERS Safety Report 9434381 (Version 1)
Quarter: 2013Q3

REPORT INFORMATION
  Report Type: Spontaneous
  Country: GB (occurrence: GB)
  Receive Date: 20130801
  Receipt Date: 20130801
  Transmission Date: 20140515
  Serious: Yes (Other)
  Sender: FDA-Public Use
  Company Number: GB-RANBAXY-2013R1-71603

PATIENT
  Age: 42 Year
  Sex: Male
  Weight: 72 kg

DRUGS (2)
  1. CITALOPRAM [Suspect]
     Indication: DEPRESSION
     Dosage: UNK
     Route: 048
     Dates: start: 20130521
  2. CETIRIZINE [Suspect]
     Indication: SEASONAL ALLERGY
     Dosage: UNK
     Route: 048
     Dates: start: 20130621, end: 20130621

REACTIONS (3)
  - Drug interaction [Recovered/Resolved]
  - Depressed mood [Recovered/Resolved]
  - Sedation [Recovered/Resolved]
